FAERS Safety Report 15476024 (Version 2)
Quarter: 2018Q4

REPORT INFORMATION
  Report Type: Spontaneous
  Country: NL (occurrence: NL)
  Receive Date: 20181009
  Receipt Date: 20181019
  Transmission Date: 20190205
  Serious: Yes (Hospitalization, Other)
  Sender: FDA-Public Use
  Company Number: NL-ROCHE-2194101

PATIENT
  Age: 54 Year
  Sex: Male

DRUGS (6)
  1. PERJETA [Suspect]
     Active Substance: PERTUZUMAB
     Indication: SALIVARY GLAND CANCER
     Route: 065
     Dates: start: 20170315
  2. CASODEX [Concomitant]
     Active Substance: BICALUTAMIDE
     Route: 065
     Dates: start: 20160530
  3. HERCEPTIN [Suspect]
     Active Substance: TRASTUZUMAB
     Indication: SALIVARY GLAND CANCER
     Route: 065
     Dates: start: 20170315
  4. TAMOXIFEN [Concomitant]
     Active Substance: TAMOXIFEN
     Route: 065
     Dates: start: 20160530
  5. DENOSUMAB [Concomitant]
     Active Substance: DENOSUMAB
  6. DOCETAXEL. [Suspect]
     Active Substance: DOCETAXEL
     Indication: SALIVARY GLAND CANCER
     Route: 065
     Dates: start: 20170315

REACTIONS (6)
  - Dyspnoea [Recovered/Resolved]
  - Pneumonia [Recovered/Resolved]
  - Cardiac failure [Recovered/Resolved]
  - Intentional product use issue [Unknown]
  - Ejection fraction decreased [Recovered/Resolved]
  - Off label use [Unknown]

NARRATIVE: CASE EVENT DATE: 20171005
